FAERS Safety Report 24667191 (Version 1)
Quarter: 2024Q4

REPORT INFORMATION
  Report Type: Spontaneous
  Country: BE (occurrence: BE)
  Receive Date: 20241126
  Receipt Date: 20241126
  Transmission Date: 20250114
  Serious: Yes (Hospitalization)
  Sender: JOHNSON AND JOHNSON
  Company Number: None

PATIENT
  Age: 19 Year
  Sex: Male

DRUGS (1)
  1. RISPERDAL [Suspect]
     Active Substance: RISPERIDONE
     Dosage: 60.00 MG IN TOTAL, PATIENT TOOK HOLE PAKKAGE
     Route: 048

REACTIONS (2)
  - Coma scale abnormal [Unknown]
  - Product communication issue [Unknown]
